FAERS Safety Report 9681790 (Version 3)
Quarter: 2013Q4

REPORT INFORMATION
  Report Type: Spontaneous
  Country: BR (occurrence: BR)
  Receive Date: 20131111
  Receipt Date: 20131119
  Transmission Date: 20140711
  Serious: Yes (Other)
  Sender: FDA-Public Use
  Company Number: BR-PFIZER INC-2013281904

PATIENT
  Age: 52 Year
  Sex: Female
  Weight: 47 kg

DRUGS (3)
  1. PRISTIQ [Suspect]
     Indication: DEPRESSION
     Dosage: 25 MG (HALF OF DOSE OF 50MG), 1X/DAY (MORNING)
     Dates: start: 20130927, end: 20131002
  2. PRISTIQ [Suspect]
     Indication: ANXIETY
  3. ZOLPIDEM (ZOLPIDEM TARTRATE) [Suspect]
     Indication: INSOMNIA
     Dosage: 10 MG, 1X/DAY
     Dates: start: 20130927

REACTIONS (21)
  - Muscle spasms [Recovered/Resolved]
  - Myoclonus [Recovered/Resolved]
  - Muscle twitching [Recovered/Resolved]
  - Migraine [Recovered/Resolved]
  - Spinal disorder [Unknown]
  - Vertigo [Recovered/Resolved]
  - Tinnitus [Recovered/Resolved]
  - Depression [Unknown]
  - Decreased appetite [Unknown]
  - Tachycardia [Recovered/Resolved]
  - Eye pain [Recovered/Resolved]
  - Toothache [Recovered/Resolved]
  - Dysstasia [Recovered/Resolved]
  - Bedridden [Recovered/Resolved]
  - Insomnia [Recovered/Resolved]
  - Vomiting [Unknown]
  - Diarrhoea [Unknown]
  - Food poisoning [Unknown]
  - Viral infection [Unknown]
  - Wrong technique in drug usage process [Unknown]
  - Drug ineffective [Unknown]
